FAERS Safety Report 9326618 (Version 3)
Quarter: 2013Q3

REPORT INFORMATION
  Report Type: Spontaneous
  Country: GB (occurrence: None)
  Receive Date: 20130530
  Receipt Date: 20130712
  Transmission Date: 20140515
  Serious: Yes (Hospitalization)
  Sender: FDA-Public Use
  Company Number: SYM-2013-04200

PATIENT
  Age: 46 Year
  Sex: Male

DRUGS (7)
  1. 5 FU [Suspect]
     Indication: COLORECTAL CANCER METASTATIC
     Route: 040
     Dates: start: 20130325, end: 20130325
  2. IRINOTECAN [Suspect]
     Indication: COLORECTAL CANCER METASTATIC
     Route: 041
     Dates: start: 20130325, end: 20130325
  3. LEUCOVORIN [Suspect]
     Indication: COLORECTAL CANCER METASTATIC
     Route: 041
     Dates: start: 20130325, end: 20130325
  4. AFLIBERCEPT [Suspect]
     Indication: COLORECTAL CANCER METASTATIC
     Route: 041
     Dates: start: 20130325, end: 20130325
  5. SUCRALFATE (SUCRALFATE) (SUCRALFATE) [Concomitant]
  6. LOPERAMIDE (LOPERAMIDE) (LOPERAMIDE) [Concomitant]
  7. ANTIBIOTICS (ANTIBIOTICS) [Concomitant]

REACTIONS (4)
  - Febrile neutropenia [None]
  - Disease progression [None]
  - Colorectal cancer metastatic [None]
  - Vesical fistula [None]
